FAERS Safety Report 4364815-0 (Version None)
Quarter: 2004Q2

REPORT INFORMATION
  Report Type: 
  Country: None (occurrence: None)
  Receive Date: 20040526
  Receipt Date: 20040308
  Transmission Date: 20050107
  Serious: No
  Sender: FDA-Public Use
  Company Number: US-GLAXOSMITHKLINE-A0503147A

PATIENT
  Age: 43 Year
  Sex: Female
  Weight: 84.5 kg

DRUGS (6)
  1. LOTRONEX [Suspect]
     Indication: IRRITABLE BOWEL SYNDROME
     Route: 048
     Dates: start: 20000405
  2. ANUSOL [Concomitant]
  3. LORTAB [Concomitant]
  4. QUESTRAN [Concomitant]
  5. ELAVIL [Concomitant]
  6. IMODIUM [Concomitant]

REACTIONS (4)
  - ABDOMINAL PAIN [None]
  - CONSTIPATION [None]
  - HAEMATOCHEZIA [None]
  - RECTAL HAEMORRHAGE [None]
